FAERS Safety Report 22257626 (Version 1)
Quarter: 2023Q2

REPORT INFORMATION
  Report Type: Spontaneous
  Country: CH (occurrence: CH)
  Receive Date: 20230427
  Receipt Date: 20230427
  Transmission Date: 20230721
  Serious: Yes (Other)
  Sender: FDA-Public Use
  Company Number: CH-SM-2023-12154

PATIENT
  Age: 60 Year
  Sex: Female
  Weight: 59 kg

DRUGS (3)
  1. VAGIFEM [Suspect]
     Active Substance: ESTRADIOL
     Dosage: 1/WEEK UNTIL FEBRUARY 2023
     Route: 067
     Dates: end: 20230218
  2. VAGIFEM [Suspect]
     Active Substance: ESTRADIOL
     Indication: Product used for unknown indication
     Dosage: FIRST 2/WEEK FOR 1 MONTH
     Route: 067
     Dates: start: 20221101
  3. BLACK COHOSH [Concomitant]
     Active Substance: BLACK COHOSH
     Indication: Product used for unknown indication
     Dosage: UNK
     Dates: start: 20220801, end: 20230218

REACTIONS (3)
  - Cognitive disorder [Recovering/Resolving]
  - Aphasia [Recovering/Resolving]
  - Headache [Recovering/Resolving]

NARRATIVE: CASE EVENT DATE: 20230117
